FAERS Safety Report 6309219-6 (Version None)
Quarter: 2009Q3

REPORT INFORMATION
  Report Type: 
  Country: None (occurrence: None)
  Receive Date: 20090814
  Receipt Date: 20090804
  Transmission Date: 20100115
  Serious: Yes (Life-Threatening, Other)
  Sender: FDA-Public Use
  Company Number: GB-PFIZER INC-2009249796

PATIENT
  Age: 67 Year

DRUGS (21)
  1. PREGABALIN [Suspect]
     Indication: PAIN
     Dosage: 50 MG, UNK
     Dates: start: 20090708, end: 20090708
  2. BETAMETHASONE VALERATE [Concomitant]
     Dosage: UNK
     Route: 061
  3. CELECOXIB [Concomitant]
     Dosage: 200 MG, 2X/DAY
  4. AMOXICILLIN AND CLAVULANATE POTASSIUM [Concomitant]
  5. ACETAMINOPHEN W/ CODEINE [Concomitant]
  6. DOMPERIDONE [Concomitant]
     Dosage: 10 MG, UNK
  7. FENTANYL [Concomitant]
     Route: 062
  8. HYDROCORTISONE [Concomitant]
  9. KETOCONAZOLE [Concomitant]
     Dosage: UNK
  10. LEVOTHYROXINE [Concomitant]
     Dosage: UNK
  11. LOPERAMIDE [Concomitant]
     Dosage: 20 ML, UNK
     Route: 048
  12. MACROGOL [Concomitant]
     Dosage: 13.8 MG, 1X/DAY
     Route: 048
  13. MORPHINE SULFATE [Concomitant]
     Dosage: UNK
     Route: 048
  14. NYSTATIN [Concomitant]
     Dosage: 1 ML, 4X/DAY
     Route: 048
  15. OMEPRAZOLE [Concomitant]
     Dosage: 20 MG, 1X/DAY
  16. OXYNORM [Concomitant]
  17. PARACETAMOL [Concomitant]
     Dosage: 500 MG, UNK
  18. POLYURETHANE [Concomitant]
     Dosage: UNK
  19. QUININE BISULFATE [Concomitant]
     Dosage: 300 MG, 1X/DAY
  20. MORPHINE SULFATE [Concomitant]
     Dosage: 30 MG, 2X/DAY
  21. PREGABALIN [Concomitant]
     Dosage: 50 MG, 2X/DAY

REACTIONS (4)
  - DISORIENTATION [None]
  - DIZZINESS [None]
  - FEAR [None]
  - SWELLING [None]
